FAERS Safety Report 8672920 (Version 3)
Quarter: 2013Q1

REPORT INFORMATION
  Report Type: Spontaneous
  Country: US (occurrence: US)
  Receive Date: 20120719
  Receipt Date: 20130212
  Transmission Date: 20140127
  Serious: Yes (Disabling, Other)
  Sender: FDA-Public Use
  Company Number: US-PFIZER INC-2012171046

PATIENT
  Age: 57 Year
  Sex: Female
  Weight: 80.27 kg

DRUGS (6)
  1. PREMARIN [Suspect]
     Indication: MENOPAUSAL SYMPTOMS
     Dosage: 0.9 MG, DAILY
     Route: 048
     Dates: start: 2002
  2. PREMARIN [Suspect]
     Indication: HORMONE REPLACEMENT THERAPY
  3. INTERFERON [Suspect]
     Indication: AUTOIMMUNE DISORDER
     Dosage: UNK
     Dates: start: 2004, end: 2005
  4. TOPROL XL [Concomitant]
     Indication: HYPERTENSION
     Dosage: 25 MG, 2X/DAY
  5. HYDROCODONE/ACETAMINOPHEN [Concomitant]
     Indication: PAIN
     Dosage: 500/5 MG, AS NEEDED
  6. PROMETHAZINE [Concomitant]
     Dosage: 25 MG, AS NEEDED

REACTIONS (7)
  - Autoimmune disorder [Not Recovered/Not Resolved]
  - Multiple sclerosis [Unknown]
  - Neuropathy peripheral [Unknown]
  - Injury [Unknown]
  - Nervous system disorder [Unknown]
  - Bone disorder [Unknown]
  - Pain [Unknown]
